FAERS Safety Report 23054883 (Version 3)
Quarter: 2024Q2

REPORT INFORMATION
  Report Type: Spontaneous
  Country: US (occurrence: US)
  Receive Date: 20231011
  Receipt Date: 20240401
  Transmission Date: 20240716
  Serious: No
  Sender: FDA-Public Use
  Company Number: US-BRISTOL-MYERS SQUIBB COMPANY-2023-144826

PATIENT
  Age: 84 Year
  Sex: Male
  Weight: 68.49 kg

DRUGS (3)
  1. POMALYST [Suspect]
     Active Substance: POMALIDOMIDE
     Indication: Plasma cell myeloma
     Dosage: 3WKS ON,1WKOFF
     Route: 048
  2. POMALYST [Suspect]
     Active Substance: POMALIDOMIDE
  3. POMALYST [Suspect]
     Active Substance: POMALIDOMIDE

REACTIONS (5)
  - Platelet count decreased [Unknown]
  - Product dose omission issue [Unknown]
  - Platelet count abnormal [Recovering/Resolving]
  - Full blood count abnormal [Recovering/Resolving]
  - Off label use [Unknown]
